FAERS Safety Report 6466269-7 (Version None)
Quarter: 2009Q4

REPORT INFORMATION
  Report Type: 
  Country: None (occurrence: None)
  Receive Date: 20091202
  Receipt Date: 20091124
  Transmission Date: 20100525
  Serious: Yes (Other)
  Sender: FDA-Public Use
  Company Number: PHHY2009IT40470

PATIENT
  Sex: Male

DRUGS (3)
  1. ZOMETA [Suspect]
     Indication: MULTIPLE MYELOMA
     Dosage: 4 MG
     Route: 042
     Dates: start: 20071201, end: 20081031
  2. TAMOXIFEN CITRATE [Concomitant]
  3. DELTACORTENE [Concomitant]
     Dosage: 2.5 MG, UNK
     Dates: start: 19960101

REACTIONS (1)
  - OSTEONECROSIS [None]
